FAERS Safety Report 6698881-4 (Version None)
Quarter: 2010Q2

REPORT INFORMATION
  Report Type: 
  Country: None (occurrence: None)
  Receive Date: 20100427
  Receipt Date: 20100422
  Transmission Date: 20101027
  Serious: Yes (Disabling)
  Sender: FDA-Public Use
  Company Number: US-MERCK-1001USA01448

PATIENT
  Age: 5 Year
  Sex: Male

DRUGS (5)
  1. SINGULAIR [Suspect]
     Indication: ASTHMA
     Route: 048
     Dates: start: 20040101, end: 20050101
  2. SINGULAIR [Suspect]
     Route: 048
     Dates: start: 20050101, end: 20060101
  3. SINGULAIR [Suspect]
     Route: 048
     Dates: start: 20060101, end: 20070101
  4. ALBUTEROL [Concomitant]
     Indication: ASTHMA
     Route: 065
  5. PULMICORT [Concomitant]
     Indication: ASTHMA
     Route: 065

REACTIONS (6)
  - ADVERSE EVENT [None]
  - ANXIETY [None]
  - DEPRESSION [None]
  - FLAT AFFECT [None]
  - PERSONALITY CHANGE [None]
  - SUICIDAL IDEATION [None]
